FAERS Safety Report 4555815-6 (Version None)
Quarter: 2005Q1

REPORT INFORMATION
  Report Type: 
  Country: None (occurrence: None)
  Receive Date: 20050112
  Receipt Date: 20040818
  Transmission Date: 20050727
  Serious: Yes (Hospitalization)
  Sender: FDA-Public Use
  Company Number: 200420206BWH

PATIENT

DRUGS (2)
  1. CIPRO [Suspect]
     Dosage: ORAL
     Route: 048
  2. SULFONYLUREA (SULFONAMIDES, UREA DERIVATIVES) [Suspect]

REACTIONS (1)
  - BLOOD GLUCOSE DECREASED [None]
